FAERS Safety Report 24215318 (Version 2)
Quarter: 2024Q3

REPORT INFORMATION
  Report Type: Spontaneous
  Country: JP (occurrence: JP)
  Receive Date: 20240816
  Receipt Date: 20240823
  Transmission Date: 20241016
  Serious: Yes (Life-Threatening, Hospitalization, Other)
  Sender: JUBILANT - No Location Specified
  Company Number: JP-JUBILANT CADISTA PHARMACEUTICALS-2024JP001172

PATIENT
  Age: 57 Year
  Sex: Female

DRUGS (9)
  1. QUETIAPINE FUMARATE [Suspect]
     Active Substance: QUETIAPINE FUMARATE
     Indication: Depression
     Dosage: 25 MG DOSE/ TAKING HALF TABLET/IR DAILY
     Route: 048
  2. QUETIAPINE FUMARATE [Suspect]
     Active Substance: QUETIAPINE FUMARATE
     Dosage: 12.5 MG, ONCE PER DAY
     Route: 048
  3. TRAZODONE [Suspect]
     Active Substance: TRAZODONE HYDROCHLORIDE
     Indication: Depression
     Dosage: 50 MG, ONCE PER DAY (2 TABLETS OF 25 MG DAILY )
     Route: 048
  4. DIAZEPAM [Concomitant]
     Active Substance: DIAZEPAM
     Indication: Product used for unknown indication
     Dosage: UNK,  UNK
     Route: 048
  5. LEVOMEPROMAZINE [Concomitant]
     Active Substance: LEVOMEPROMAZINE
     Indication: Product used for unknown indication
     Dosage: UNK,  UNK
     Route: 048
  6. PALIPERIDONE [Concomitant]
     Active Substance: PALIPERIDONE
     Indication: Product used for unknown indication
     Dosage: UNK,  UNK
     Route: 048
  7. PAROXETINE [Concomitant]
     Active Substance: PAROXETINE
     Indication: Depression
     Dosage: 25 MG, ONCE PER DAY
     Route: 048
  8. RISPERIDONE [Concomitant]
     Active Substance: RISPERIDONE
     Indication: Depression
     Dosage: 2 MG, ONCE PER DAY (2 TABLETS OF 1 MG OF RISPERIDONE DAILY )
     Route: 048
  9. ZOLPIDEM [Concomitant]
     Active Substance: ZOLPIDEM TARTRATE
     Indication: Product used for unknown indication
     Dosage: UNK,  UNK
     Route: 048

REACTIONS (5)
  - Altered state of consciousness [Recovered/Resolved]
  - Pneumonia aspiration [Recovered/Resolved]
  - Overdose [Recovered/Resolved]
  - Bezoar [Recovered/Resolved]
  - Hypotension [Recovered/Resolved]
